FAERS Safety Report 4742513-9 (Version None)
Quarter: 2005Q3

REPORT INFORMATION
  Report Type: 
  Country: None (occurrence: None)
  Receive Date: 20050808
  Receipt Date: 20050726
  Transmission Date: 20060218
  Serious: Yes (Death, Hospitalization)
  Sender: FDA-Public Use
  Company Number: US-2005-007777

PATIENT
  Age: 63 Year
  Sex: Female

DRUGS (5)
  1. BETASERON [Suspect]
     Indication: MULTIPLE SCLEROSIS
     Dosage: 8 MIU, EVERY 2D, SUBCUTANEOUS
     Route: 058
     Dates: start: 19931217, end: 20050507
  2. DILANTIN     /AUS/(PHENYTOIN SODIUM) [Concomitant]
  3. NORVASC    /DEN/(AMLODIPINE BESILATE) [Concomitant]
  4. LISINOPRIL [Concomitant]
  5. PLAQUINOL (HYDROXYCHLOROQUINE SULFATE) [Concomitant]

REACTIONS (2)
  - CARDIAC ARREST [None]
  - TORSADE DE POINTES [None]
